FAERS Safety Report 12477116 (Version 4)
Quarter: 2017Q4

REPORT INFORMATION
  Report Type: Report from Study
  Country: GB (occurrence: GB)
  Receive Date: 20160617
  Receipt Date: 20171020
  Transmission Date: 20180320
  Serious: Yes (Other)
  Sender: FDA-Public Use
  Company Number: GB-SEATTLE GENETICS-2016SGN00959

PATIENT
  Age: 84 Year
  Sex: Female
  Weight: 59.8 kg

DRUGS (3)
  1. BRENTUXIMAB VEDOTIN [Suspect]
     Active Substance: BRENTUXIMAB VEDOTIN
     Indication: HODGKIN^S DISEASE
  2. BRENTUXIMAB VEDOTIN [Suspect]
     Active Substance: BRENTUXIMAB VEDOTIN
     Indication: HODGKIN^S DISEASE
     Dosage: 70 MG, Q21D
     Route: 041
     Dates: start: 20150326, end: 20151111
  3. BIMATOPROST. [Suspect]
     Active Substance: BIMATOPROST
     Indication: GLAUCOMA
     Dosage: 300 ?G, Q6HR
     Route: 047
     Dates: start: 2010, end: 20160419

REACTIONS (1)
  - Cystoid macular oedema [Recovered/Resolved with Sequelae]

NARRATIVE: CASE EVENT DATE: 20160204
